FAERS Safety Report 11037900 (Version 3)
Quarter: 2015Q3

REPORT INFORMATION
  Report Type: Spontaneous
  Country: US (occurrence: None)
  Receive Date: 20150414
  Receipt Date: 20150706
  Transmission Date: 20151125
  Serious: Yes (Hospitalization, Other)
  Sender: FDA-Public Use
  Company Number: ADR-2009-7442

PATIENT
  Age: 12 Year
  Sex: Female

DRUGS (2)
  1. LIORESAL [Suspect]
     Active Substance: BACLOFEN
     Indication: MUSCLE SPASTICITY
  2. DANTRIUM [Suspect]
     Active Substance: DANTROLENE SODIUM

REACTIONS (11)
  - Asthenia [None]
  - Agitation [None]
  - Peripheral coldness [None]
  - Staphylococcal infection [None]
  - Device kink [None]
  - Vomiting [None]
  - Pruritus [None]
  - Tremor [None]
  - Withdrawal syndrome [None]
  - Pain [None]
  - Pneumothorax [None]

NARRATIVE: CASE EVENT DATE: 20070914
